FAERS Safety Report 21996160 (Version 4)
Quarter: 2023Q1

REPORT INFORMATION
  Report Type: Spontaneous
  Country: US (occurrence: US)
  Receive Date: 20230215
  Receipt Date: 20230315
  Transmission Date: 20230417
  Serious: No
  Sender: FDA-Public Use
  Company Number: US-BRISTOL-MYERS SQUIBB COMPANY-2023-022569

PATIENT
  Age: 75 Year
  Sex: Female

DRUGS (1)
  1. REVLIMID [Suspect]
     Active Substance: LENALIDOMIDE
     Indication: Plasma cell myeloma
     Dosage: FREQ - TAKE 1 CAPSULE BY MOUTH EVERY DAY FOR 21 DAYS FOLLOWED BY 7 DAYS OFF
     Route: 048
     Dates: start: 20230127

REACTIONS (4)
  - Diarrhoea [Recovered/Resolved]
  - Weight decreased [Recovered/Resolved]
  - Vision blurred [Recovered/Resolved]
  - Abdominal pain upper [Recovered/Resolved]
